FAERS Safety Report 24695259 (Version 1)
Quarter: 2024Q4

REPORT INFORMATION
  Report Type: Spontaneous
  Country: US (occurrence: None)
  Receive Date: 20241204
  Receipt Date: 20241204
  Transmission Date: 20250114
  Serious: Yes (Disabling, Other)
  Sender: Public
  Company Number: None

PATIENT
  Age: 61 Year
  Sex: 0
  Weight: 67.5 kg

DRUGS (13)
  1. BELBUCA [Suspect]
     Active Substance: BUPRENORPHINE HYDROCHLORIDE
     Indication: Back pain
     Dosage: OTHER QUANTITY : 1 BUCCAL FILM;?FREQUENCY : EVERY 12 HOURS;?
     Route: 060
  2. LOSARTAN [Concomitant]
     Active Substance: LOSARTAN
  3. ADDERALL [Concomitant]
     Active Substance: AMPHETAMINE ASPARTATE\AMPHETAMINE SULFATE\DEXTROAMPHETAMINE SACCHARATE\DEXTROAMPHETAMINE SULFATE
  4. SOLIFENACIN [Concomitant]
     Active Substance: SOLIFENACIN
  5. HUMIRA [Concomitant]
     Active Substance: ADALIMUMAB
  6. LEFLUNOMIDE [Concomitant]
     Active Substance: LEFLUNOMIDE
  7. ALPRAZOLAM [Concomitant]
     Active Substance: ALPRAZOLAM
  8. TYLENOL [Concomitant]
     Active Substance: ACETAMINOPHEN
  9. vitamins b [Concomitant]
  10. c [Concomitant]
  11. D [Concomitant]
  12. TOCOPHEROL [Concomitant]
     Active Substance: TOCOPHEROL
  13. cranberry supplement [Concomitant]

REACTIONS (11)
  - Nausea [None]
  - Vomiting [None]
  - Inadequate analgesia [None]
  - Dry mouth [None]
  - Dental caries [None]
  - Tooth fracture [None]
  - Tooth loss [None]
  - Gingival recession [None]
  - Gingival bleeding [None]
  - Abscess oral [None]
  - Dental caries [None]

NARRATIVE: CASE EVENT DATE: 20240518
